FAERS Safety Report 14345528 (Version 1)
Quarter: 2017Q4

REPORT INFORMATION
  Report Type: Spontaneous
  Country: US (occurrence: US)
  Receive Date: 20171230
  Receipt Date: 20171230
  Transmission Date: 20180321
  Serious: No
  Sender: FDA-Public Use
  Company Number: None

PATIENT
  Age: 63 Year
  Sex: Female

DRUGS (1)
  1. EPCLUSA [Suspect]
     Active Substance: SOFOSBUVIR\VELPATASVIR
     Indication: CHRONIC HEPATITIS C
     Dosage: 400MG/100MG QD PO
     Route: 048
     Dates: start: 20171110

REACTIONS (5)
  - Diarrhoea [None]
  - Alopecia [None]
  - Headache [None]
  - Nausea [None]
  - Insomnia [None]
